FAERS Safety Report 6137615-9 (Version None)
Quarter: 2009Q1

REPORT INFORMATION
  Report Type: 
  Country: None (occurrence: None)
  Receive Date: 20090331
  Receipt Date: 20090323
  Transmission Date: 20090719
  Serious: Yes (Other)
  Sender: FDA-Public Use
  Company Number: DE-JNJFOC-20090305698

PATIENT
  Sex: Male

DRUGS (5)
  1. RISPERDAL [Suspect]
     Indication: DRUG USE FOR UNKNOWN INDICATION
     Dosage: 4-5 TABLETS
     Route: 048
  2. ANAFRANIL [Suspect]
     Indication: DRUG USE FOR UNKNOWN INDICATION
     Dosage: 4-5 TABLETS
     Route: 048
  3. SEROQUEL [Suspect]
     Indication: DRUG USE FOR UNKNOWN INDICATION
     Dosage: 4-5 TABLETS
     Route: 048
  4. STABLON [Suspect]
     Indication: DRUG USE FOR UNKNOWN INDICATION
     Dosage: 4-5 TABLETS
     Route: 048
  5. TOLVON [Suspect]
     Indication: DRUG USE FOR UNKNOWN INDICATION
     Dosage: 4-5 TABLETS
     Route: 048

REACTIONS (3)
  - FATIGUE [None]
  - MULTIPLE DRUG OVERDOSE INTENTIONAL [None]
  - SUICIDE ATTEMPT [None]
